FAERS Safety Report 8507572 (Version 2)
Quarter: 2012Q4

REPORT INFORMATION
  Report Type: 
  Country: US (occurrence: US)
  Receive Date: 20120412
  Receipt Date: 20121022
  Transmission Date: 20130627
  Serious: No
  Sender: FDA-Public Use
  Company Number: US-ASTRAZENECA-2011SE50127

PATIENT
  Age: 54 Year
  Sex: Female

DRUGS (4)
  1. NEXIUM [Suspect]
     Route: 048
  2. VIMOVO [Suspect]
     Dosage: 500 MG/ 20MG, DAILY
     Route: 048
  3. PRILOSEC [Suspect]
     Route: 048
  4. TYLENOL [Concomitant]

REACTIONS (10)
  - Pain [Unknown]
  - Arthritis [Unknown]
  - Pain in extremity [Unknown]
  - Pain in extremity [Unknown]
  - Decreased appetite [Unknown]
  - Pyrexia [Unknown]
  - Malaise [Unknown]
  - Vomiting [Unknown]
  - Drug dose omission [Unknown]
  - Malaise [Unknown]
